FAERS Safety Report 24983110 (Version 1)
Quarter: 2025Q1

REPORT INFORMATION
  Report Type: Report from Study
  Country: CA (occurrence: CA)
  Receive Date: 20250218
  Receipt Date: 20250218
  Transmission Date: 20250409
  Serious: Yes (Hospitalization, Other)
  Sender: ABBVIE
  Company Number: CA-ABBVIE-6114033

PATIENT
  Age: 54 Year
  Sex: Female

DRUGS (2)
  1. VENCLEXTA [Suspect]
     Active Substance: VENETOCLAX
     Indication: Acute myeloid leukaemia
     Dosage: FORM STRENGTH : 100 MG
     Route: 048
     Dates: start: 20241216
  2. AZACITIDINE [Concomitant]
     Active Substance: AZACITIDINE
     Indication: Product used for unknown indication

REACTIONS (8)
  - Febrile neutropenia [Unknown]
  - Nausea [Unknown]
  - Weight increased [Unknown]
  - Respiratory syncytial virus infection [Unknown]
  - Bacteraemia [Recovered/Resolved]
  - Clostridium difficile infection [Unknown]
  - Sinusitis [Unknown]
  - Hypophagia [Unknown]

NARRATIVE: CASE EVENT DATE: 20250101
